FAERS Safety Report 12837250 (Version 1)
Quarter: 2016Q4

REPORT INFORMATION
  Report Type: Spontaneous
  Country: US (occurrence: US)
  Receive Date: 20161011
  Receipt Date: 20161011
  Transmission Date: 20170207
  Serious: Yes (Other)
  Sender: FDA-Public Use
  Company Number: US-LUNDBECK-DKLU2020550

PATIENT
  Sex: Male

DRUGS (2)
  1. NORTHERA [Suspect]
     Active Substance: DROXIDOPA
     Indication: AUTONOMIC FAILURE SYNDROME
     Route: 065
  2. NORTHERA [Suspect]
     Active Substance: DROXIDOPA
     Indication: NEUROPATHY PERIPHERAL

REACTIONS (8)
  - Headache [Unknown]
  - Syncope [Unknown]
  - Condition aggravated [Unknown]
  - Neck pain [Unknown]
  - Diplopia [Unknown]
  - Urinary retention [Unknown]
  - Chest pain [Unknown]
  - Asthenia [Unknown]
